FAERS Safety Report 6035409-6 (Version None)
Quarter: 2009Q1

REPORT INFORMATION
  Report Type: 
  Country: None (occurrence: None)
  Receive Date: 20090108
  Receipt Date: 20090105
  Transmission Date: 20090719
  Serious: Yes (Disabling, Other)
  Sender: FDA-Public Use
  Company Number: 1000000599

PATIENT
  Age: 59 Year
  Sex: Male

DRUGS (4)
  1. ESCITALOPRAM [Suspect]
     Indication: SOCIAL PHOBIA
     Dosage: 10 MG (10 MG, 1 IN 1 D)
     Dates: start: 20080619, end: 20080601
  2. ESCITALOPRAM [Suspect]
     Indication: SOCIAL PHOBIA
     Dosage: 5 MG (5 MG, 1 IN 1 D)
     Dates: start: 20080601, end: 20080707
  3. ESCITALOPRAM [Suspect]
     Indication: SOCIAL PHOBIA
     Dosage: 5 MG (5 MG, 1 IN 1 D)
     Dates: start: 20080515, end: 20080618
  4. ANTABUSE [Suspect]
     Indication: ALCOHOLISM
     Dosage: ORAL
     Route: 048
     Dates: start: 20080415, end: 20080727

REACTIONS (9)
  - BLOOD ALBUMIN DECREASED [None]
  - COGNITIVE DISORDER [None]
  - DRUG INTERACTION [None]
  - DYSGRAPHIA [None]
  - DYSKINESIA [None]
  - INFLUENZA LIKE ILLNESS [None]
  - MEMORY IMPAIRMENT [None]
  - MOTOR DYSFUNCTION [None]
  - PLATELET COUNT DECREASED [None]
